FAERS Safety Report 4950502-4 (Version None)
Quarter: 2006Q1

REPORT INFORMATION
  Report Type: 
  Country: None (occurrence: None)
  Receive Date: 20060322
  Receipt Date: 20060310
  Transmission Date: 20060701
  Serious: Yes (Hospitalization)
  Sender: FDA-Public Use
  Company Number: FR-GLAXOSMITHKLINE-B0415699A

PATIENT
  Age: 1 Month
  Sex: Female

DRUGS (4)
  1. RETROVIR [Suspect]
     Indication: ANTIVIRAL PROPHYLAXIS
     Route: 048
     Dates: start: 20021230, end: 20030210
  2. RETROVIR [Suspect]
     Dates: start: 20021230, end: 20021230
  3. RETROVIR [Suspect]
     Dates: start: 20021105, end: 20021230
  4. INSULIN [Concomitant]
     Indication: GESTATIONAL DIABETES

REACTIONS (4)
  - CEREBRAL VENTRICLE DILATATION [None]
  - DRUG EXPOSURE DURING PREGNANCY [None]
  - FONTANELLE BULGING [None]
  - NUCLEAR MAGNETIC RESONANCE IMAGING ABNORMAL [None]
